FAERS Safety Report 5141205-4 (Version None)
Quarter: 2006Q4

REPORT INFORMATION
  Report Type: 
  Country: None (occurrence: None)
  Receive Date: 20061026
  Receipt Date: 20061013
  Transmission Date: 20070319
  Serious: Yes (Hospitalization, Congenital Anomaly, Other)
  Sender: FDA-Public Use
  Company Number: 2005146916

PATIENT
  Age: 45 Year
  Sex: Female
  Weight: 62.5964 kg

DRUGS (6)
  1. SU-011,248 (SUNITINIB MALATE) [Suspect]
     Indication: GASTROINTESTINAL STROMAL TUMOUR
     Dosage: 37.5 MG (12.5 MG, 3 IN 1 D) ORAL
     Route: 048
     Dates: start: 20050622
  2. OXYCONTIN [Concomitant]
  3. AMBIEN [Concomitant]
  4. PRILOSEC [Concomitant]
  5. OXYCODONE HCL [Concomitant]
  6. ATIVAN [Concomitant]

REACTIONS (3)
  - ABDOMINAL PAIN [None]
  - DRUG TOXICITY [None]
  - HAEMATEMESIS [None]
